FAERS Safety Report 11889316 (Version 1)
Quarter: 2016Q1

REPORT INFORMATION
  Report Type: Spontaneous
  Country: US (occurrence: None)
  Receive Date: 20160104
  Receipt Date: 20160104
  Transmission Date: 20160526
  Serious: Yes (Disabling)
  Sender: FDA-Public Use
  Company Number: None

PATIENT
  Age: 55 Year
  Sex: Male
  Weight: 131.54 kg

DRUGS (3)
  1. ATORVASTATIN [Suspect]
     Active Substance: ATORVASTATIN
     Indication: BLOOD CHOLESTEROL INCREASED
     Dosage: 1 AT BEDTIME TAKEN BY MOUTH
     Route: 048
  2. LATANOPROST. [Concomitant]
     Active Substance: LATANOPROST
  3. LISINOPRIL. [Concomitant]
     Active Substance: LISINOPRIL

REACTIONS (9)
  - Toothache [None]
  - Arthralgia [None]
  - Malaise [None]
  - Retinal detachment [None]
  - Headache [None]
  - Abdominal pain [None]
  - Neck pain [None]
  - Groin pain [None]
  - Glaucoma [None]
